FAERS Safety Report 18765481 (Version 2)
Quarter: 2021Q1

REPORT INFORMATION
  Report Type: Spontaneous
  Country: US (occurrence: US)
  Receive Date: 20210121
  Receipt Date: 20210129
  Transmission Date: 20210419
  Serious: No
  Sender: FDA-Public Use
  Company Number: US-009507513-2101USA009459

PATIENT
  Age: 19 Year
  Sex: Female
  Weight: 83 kg

DRUGS (1)
  1. NEXPLANON [Suspect]
     Active Substance: ETONOGESTREL
     Indication: CONTRACEPTION
     Dosage: IMPLANT
     Route: 059
     Dates: start: 2020

REACTIONS (2)
  - Medical device site discomfort [Unknown]
  - Implant site pain [Unknown]

NARRATIVE: CASE EVENT DATE: 20210116
